FAERS Safety Report 14424407 (Version 7)
Quarter: 2020Q2

REPORT INFORMATION
  Report Type: Other
  Country: NL (occurrence: NL)
  Receive Date: 20180123
  Receipt Date: 20200526
  Transmission Date: 20200713
  Serious: Yes (Other)
  Sender: FDA-Public Use
  Company Number: NL-CELLTRION INC.-2017NL016937

PATIENT

DRUGS (3)
  1. THIOSIX [Suspect]
     Active Substance: THIOGUANINE ANHYDROUS
     Indication: INFLAMMATORY BOWEL DISEASE
     Dosage: 20 MG, DAILY
     Route: 065
     Dates: start: 20160712
  2. REMSIMA [Suspect]
     Active Substance: INFLIXIMAB
     Indication: INFLAMMATORY BOWEL DISEASE
     Dosage: UNK
     Route: 065
  3. THIOSIX [Suspect]
     Active Substance: THIOGUANINE ANHYDROUS
     Dosage: 20 MILLIGRAM DAILY;
     Route: 065
     Dates: start: 20160718

REACTIONS (11)
  - Pubic pain [Recovered/Resolved]
  - Inflammation [Recovered/Resolved]
  - Eczema [Recovered/Resolved]
  - Genital erythema [Recovered/Resolved]
  - Toxic skin eruption [Recovered/Resolved]
  - Eye inflammation [Recovered/Resolved]
  - Fatigue [Recovered/Resolved]
  - Skin exfoliation [Recovered/Resolved]
  - Erythema [Recovered/Resolved]
  - Swelling [Recovered/Resolved]
  - Wound secretion [Recovered/Resolved]

NARRATIVE: CASE EVENT DATE: 20170308
